FAERS Safety Report 9449995 (Version 1)
Quarter: 2013Q3

REPORT INFORMATION
  Report Type: Spontaneous
  Country: US (occurrence: US)
  Receive Date: 20130809
  Receipt Date: 20130809
  Transmission Date: 20140515
  Serious: No
  Sender: FDA-Public Use
  Company Number: US-009507513-1308USA001848

PATIENT
  Age: 20 Year
  Sex: Male

DRUGS (3)
  1. SAPHRIS [Suspect]
     Indication: AFFECTIVE DISORDER
     Dosage: 10 MG, QHS
     Route: 060
     Dates: start: 20130715, end: 20130801
  2. SAPHRIS [Suspect]
     Indication: PSYCHOTIC DISORDER
  3. PROZAC [Concomitant]
     Dosage: 40 MG, QAM

REACTIONS (3)
  - Mood altered [Unknown]
  - Abnormal behaviour [Unknown]
  - Tremor [Recovered/Resolved]
